FAERS Safety Report 18536493 (Version 1)
Quarter: 2020Q4

REPORT INFORMATION
  Report Type: Spontaneous
  Country: US (occurrence: US)
  Receive Date: 20201124
  Receipt Date: 20201124
  Transmission Date: 20210114
  Serious: Yes (Other)
  Sender: FDA-Public Use
  Company Number: US-009507513-2011USA010561

PATIENT
  Age: 30529 Day
  Sex: Female
  Weight: 81.2 kg

DRUGS (11)
  1. COREG [Concomitant]
     Active Substance: CARVEDILOL
     Indication: BLOOD PRESSURE ABNORMAL
     Dosage: 12.5 MILLIGRAM, Q6H
     Route: 065
     Dates: start: 20140626
  2. FLOVENT [Concomitant]
     Active Substance: FLUTICASONE PROPIONATE
     Dosage: UNKNOWN
     Route: 065
  3. ARIMIDEX [Suspect]
     Active Substance: ANASTROZOLE
     Indication: BREAST CANCER FEMALE
     Dosage: 1 MILLIGRAM, QD
     Route: 048
     Dates: start: 201410, end: 201412
  4. FASLODEX [Suspect]
     Active Substance: FULVESTRANT
     Indication: BREAST CANCER FEMALE
     Dosage: 250 MILLIGRAM
     Route: 030
     Dates: start: 20151109
  5. ASPIRIN. [Concomitant]
     Active Substance: ASPIRIN
     Dosage: 81 MILLIGRAM, QD
     Route: 065
  6. NASONEX [Concomitant]
     Active Substance: MOMETASONE FUROATE
     Dosage: UNKNOWN
     Route: 065
  7. PRINIVIL [Suspect]
     Active Substance: LISINOPRIL
     Indication: BLOOD PRESSURE ABNORMAL
     Dosage: UNKNOWN
     Route: 048
  8. VITAMIN D3 AXONIA [Concomitant]
     Dosage: UNKNOWN
     Route: 065
  9. HYDROCHLOROTHIAZIDE. [Concomitant]
     Active Substance: HYDROCHLOROTHIAZIDE
     Indication: BLOOD PRESSURE ABNORMAL
     Dosage: 12.5 MILLIGRAM, Q12H
     Route: 065
     Dates: start: 20140414
  10. DIOVAN [Concomitant]
     Active Substance: VALSARTAN
     Indication: BLOOD PRESSURE ABNORMAL
     Dosage: 40 MILLIGRAM, QD
     Route: 065
  11. EXEMESTANE. [Concomitant]
     Active Substance: EXEMESTANE
     Dosage: UNKNOWN
     Route: 065
     Dates: end: 201507

REACTIONS (13)
  - Gait disturbance [Unknown]
  - Pain [Recovering/Resolving]
  - Urticaria [Recovering/Resolving]
  - Blood pressure increased [Unknown]
  - Cough [Unknown]
  - Mobility decreased [Unknown]
  - Oedema peripheral [Unknown]
  - Renal disorder [Recovered/Resolved]
  - Hypersensitivity [Unknown]
  - Heart rate increased [Recovered/Resolved]
  - Off label use [Unknown]
  - Headache [Unknown]
  - Joint stiffness [Unknown]

NARRATIVE: CASE EVENT DATE: 20151109
